FAERS Safety Report 10495821 (Version 3)
Quarter: 2014Q4

REPORT INFORMATION
  Report Type: Spontaneous
  Country: US (occurrence: US)
  Receive Date: 20141003
  Receipt Date: 20141021
  Transmission Date: 20150528
  Serious: Yes (Other)
  Sender: FDA-Public Use
  Company Number: US-TARO-2014TAR00409

PATIENT
  Age: 97 Year
  Sex: Male
  Weight: 81.63 kg

DRUGS (3)
  1. FLUOCINONIDE CREAM USP 0.05% [Suspect]
     Active Substance: FLUOCINONIDE
     Indication: SKIN DISORDER
     Dosage: UNK UNK, 2X/DAY
     Route: 061
     Dates: start: 20140914, end: 20140918
  2. LISINOPRIL. [Concomitant]
     Active Substance: LISINOPRIL
     Dosage: UNK, 1X/DAY
  3. LOVASTATIN. [Concomitant]
     Active Substance: LOVASTATIN
     Dosage: 10 MG, 1X/DAY

REACTIONS (7)
  - Insomnia [Recovered/Resolved]
  - Panic attack [Recovered/Resolved]
  - Hallucination [Recovered/Resolved]
  - Skin disorder [Unknown]
  - Dermatitis [Unknown]
  - Anxiety [Recovered/Resolved]
  - Erythema [Unknown]

NARRATIVE: CASE EVENT DATE: 201409
